FAERS Safety Report 24936815 (Version 1)
Quarter: 2025Q1

REPORT INFORMATION
  Report Type: Spontaneous
  Country: SA (occurrence: SA)
  Receive Date: 20250206
  Receipt Date: 20250206
  Transmission Date: 20250409
  Serious: Yes (Other)
  Sender: GRANULES PHARMACEUTICALS INC
  Company Number: SA-GRANULES-SA-2025GRALIT00036

PATIENT
  Age: 39 Year
  Sex: Female

DRUGS (2)
  1. METFORMIN HYDROCHLORIDE [Suspect]
     Active Substance: METFORMIN HYDROCHLORIDE
     Indication: Polycystic ovarian syndrome
     Route: 065
  2. METFORMIN HYDROCHLORIDE [Suspect]
     Active Substance: METFORMIN HYDROCHLORIDE
     Route: 065

REACTIONS (4)
  - Cranial nerve disorder [Recovered/Resolved]
  - Eyelid myokymia [Recovered/Resolved]
  - Vitamin B12 deficiency [Recovered/Resolved]
  - Product use in unapproved indication [Unknown]
